FAERS Safety Report 9200683 (Version 1)
Quarter: 2013Q1

REPORT INFORMATION
  Report Type: Spontaneous
  Country: US (occurrence: US)
  Receive Date: 20130331
  Receipt Date: 20130331
  Transmission Date: 20140127
  Serious: Yes (Hospitalization, Other)
  Sender: FDA-Public Use
  Company Number: US-ELI_LILLY_AND_COMPANY-US201303006770

PATIENT
  Sex: Female

DRUGS (4)
  1. CYMBALTA [Suspect]
  2. LYRICA [Concomitant]
  3. LEXAPRO [Concomitant]
  4. PERCOCET [Concomitant]

REACTIONS (3)
  - Drug hypersensitivity [Unknown]
  - Convulsion [Unknown]
  - Anger [Unknown]
